FAERS Safety Report 18687669 (Version 2)
Quarter: 2021Q2

REPORT INFORMATION
  Report Type: Spontaneous
  Country: US (occurrence: US)
  Receive Date: 20201231
  Receipt Date: 20210402
  Transmission Date: 20210717
  Serious: Yes (Death, Hospitalization, Other)
  Sender: FDA-Public Use
  Company Number: US-IPCA LABORATORIES LIMITED-IPC-2020-US-003734

PATIENT

DRUGS (1)
  1. CHLOROQUINE. [Suspect]
     Active Substance: CHLOROQUINE
     Indication: CONNECTIVE TISSUE DISORDER
     Dosage: 250 MILLIGRAM, QD
     Route: 065

REACTIONS (6)
  - Multiple organ dysfunction syndrome [Fatal]
  - Cardiogenic shock [Fatal]
  - Shock [Fatal]
  - Cardiomyopathy [Fatal]
  - Cardiotoxicity [Fatal]
  - Cardiac failure [Fatal]
